FAERS Safety Report 4619930-0 (Version None)
Quarter: 2005Q1

REPORT INFORMATION
  Report Type: 
  Country: None (occurrence: None)
  Receive Date: 20050328
  Receipt Date: 20050317
  Transmission Date: 20050727
  Serious: Yes (Hospitalization)
  Sender: FDA-Public Use
  Company Number: JP-ABBOTT-05P-087-0294607-00

PATIENT
  Age: 24 Month
  Sex: Female

DRUGS (1)
  1. VALPROIC ACID SYRUP [Suspect]
     Indication: DRUG USE FOR UNKNOWN INDICATION
     Route: 065

REACTIONS (4)
  - FANCONI SYNDROME ACQUIRED [None]
  - METABOLIC ACIDOSIS [None]
  - PNEUMONIA [None]
  - PROTEINURIA [None]
